FAERS Safety Report 24754379 (Version 1)
Quarter: 2024Q4

REPORT INFORMATION
  Report Type: Spontaneous
  Country: US (occurrence: US)
  Receive Date: 20241219
  Receipt Date: 20241219
  Transmission Date: 20250115
  Serious: Yes (Other)
  Sender: ELI LILLY AND COMPANY
  Company Number: US-ELI_LILLY_AND_COMPANY-US202412006543

PATIENT
  Age: 69 Year
  Sex: Female

DRUGS (4)
  1. TRULICITY [Suspect]
     Active Substance: DULAGLUTIDE
     Indication: Product used for unknown indication
     Dosage: 1.5 MG, UNKNOWN
     Route: 058
     Dates: start: 2018
  2. TRULICITY [Suspect]
     Active Substance: DULAGLUTIDE
     Indication: Product used for unknown indication
     Dosage: 3 MG, UNKNOWN
     Route: 058
  3. METFORMIN HYDROCHLORIDE [Concomitant]
     Active Substance: METFORMIN HYDROCHLORIDE
     Indication: Product used for unknown indication
     Dosage: 500 MG, UNKNOWN
     Route: 065
     Dates: start: 2018
  4. LANTUS [Concomitant]
     Active Substance: INSULIN GLARGINE
     Indication: Product used for unknown indication
     Dosage: 50 U, UNKNOWN
     Route: 065

REACTIONS (8)
  - Cerebrovascular accident [Unknown]
  - Dementia Alzheimer^s type [Unknown]
  - Fall [Unknown]
  - Cataract [Unknown]
  - Blood glucose increased [Unknown]
  - Muscular weakness [Unknown]
  - Vertigo [Unknown]
  - Constipation [Unknown]

NARRATIVE: CASE EVENT DATE: 20210101
